FAERS Safety Report 10908810 (Version 1)
Quarter: 2015Q1

REPORT INFORMATION
  Report Type: Spontaneous
  Country: US (occurrence: None)
  Receive Date: 20150309
  Receipt Date: 20150309
  Transmission Date: 20150721
  Serious: No
  Sender: FDA-Public Use
  Company Number: None

PATIENT
  Age: 68 Year
  Sex: Male

DRUGS (7)
  1. AMPYRA [Suspect]
     Active Substance: DALFAMPRIDINE
     Indication: MULTIPLE SCLEROSIS
     Route: 048
     Dates: start: 201009, end: 2010
  2. VOLTAREN [Concomitant]
     Active Substance: DICLOFENAC SODIUM
  3. AMLODIPINE [Concomitant]
     Active Substance: AMLODIPINE BESYLATE
  4. MOTRIN [Concomitant]
     Active Substance: IBUPROFEN
  5. AVONEX [Concomitant]
     Active Substance: INTERFERON BETA-1A
  6. AMPYRA [Concomitant]
     Active Substance: DALFAMPRIDINE
  7. TERAZOSIN [Concomitant]
     Active Substance: TERAZOSIN\TERAZOSIN HYDROCHLORIDE

REACTIONS (2)
  - Dizziness [None]
  - Drug ineffective [None]

NARRATIVE: CASE EVENT DATE: 20130507
